FAERS Safety Report 10444232 (Version 1)
Quarter: 2014Q3

REPORT INFORMATION
  Report Type: Spontaneous
  Country: US (occurrence: None)
  Receive Date: 20140909
  Receipt Date: 20140909
  Transmission Date: 20150326
  Serious: Yes (Hospitalization)
  Sender: FDA-Public Use
  Company Number: None

PATIENT
  Age: 1 Year
  Sex: Male
  Weight: 10.6 kg

DRUGS (4)
  1. MERCAPTOPURINE. [Suspect]
     Active Substance: MERCAPTOPURINE
     Dates: end: 20140907
  2. METHOTREXATE [Suspect]
     Active Substance: METHOTREXATE
     Dates: end: 20140902
  3. VINCRISTINE SULFATE. [Suspect]
     Active Substance: VINCRISTINE SULFATE
     Dates: end: 20140812
  4. DEXMATHASONE [Suspect]
     Active Substance: DEXAMETHASONE
     Dates: end: 20140817

REACTIONS (2)
  - Middle insomnia [None]
  - Vomiting [None]

NARRATIVE: CASE EVENT DATE: 20140908
